FAERS Safety Report 16051366 (Version 1)
Quarter: 2019Q1

REPORT INFORMATION
  Report Type: Other
  Country: US (occurrence: US)
  Receive Date: 20190308
  Receipt Date: 20190308
  Transmission Date: 20190418
  Serious: Yes (Hospitalization)
  Sender: FDA-Public Use
  Company Number: US-INTERCEPT-PM2019000356

PATIENT
  Age: 40 Year
  Sex: Female

DRUGS (1)
  1. OCALIVA [Suspect]
     Active Substance: OBETICHOLIC ACID
     Indication: PRIMARY BILIARY CHOLANGITIS
     Dosage: 5 MG, QD
     Route: 048
     Dates: start: 20190119

REACTIONS (3)
  - Diarrhoea [Unknown]
  - Blood potassium decreased [Unknown]
  - Product dose omission [Unknown]

NARRATIVE: CASE EVENT DATE: 201902
